FAERS Safety Report 18179058 (Version 1)
Quarter: 2020Q3

REPORT INFORMATION
  Report Type: Spontaneous
  Country: US (occurrence: US)
  Receive Date: 20200820
  Receipt Date: 20200820
  Transmission Date: 20201103
  Serious: Yes (Hospitalization)
  Sender: FDA-Public Use
  Company Number: US-VIFOR (INTERNATIONAL) INC.-VIT-2020-08821

PATIENT
  Age: 69 Year
  Sex: Male

DRUGS (6)
  1. AMLODIPINE [Concomitant]
     Active Substance: AMLODIPINE BESYLATE
     Dates: start: 20170714
  2. VELTASSA [Suspect]
     Active Substance: PATIROMER
     Route: 048
     Dates: start: 20200623
  3. ELIQUIS [Concomitant]
     Active Substance: APIXABAN
     Dates: start: 20170714
  4. METOPROLOL. [Concomitant]
     Active Substance: METOPROLOL
     Dates: start: 20170714
  5. PROPAFENONE. [Concomitant]
     Active Substance: PROPAFENONE
     Dates: start: 20170714
  6. VELTASSA [Suspect]
     Active Substance: PATIROMER
     Indication: HYPERKALAEMIA
     Route: 048
     Dates: start: 20170727

REACTIONS (1)
  - Renal transplant [Unknown]

NARRATIVE: CASE EVENT DATE: 202007
